FAERS Safety Report 19631224 (Version 1)
Quarter: 2021Q3

REPORT INFORMATION
  Report Type: Spontaneous
  Country: US (occurrence: US)
  Receive Date: 20210728
  Receipt Date: 20210728
  Transmission Date: 20211014
  Serious: Yes (Other)
  Sender: FDA-Public Use
  Company Number: US-SA-2021SA246615

PATIENT
  Age: 81 Year
  Sex: Male

DRUGS (2)
  1. NA [Concomitant]
     Active Substance: SODIUM
     Route: 065
  2. LANTUS SOLOSTAR [Suspect]
     Active Substance: INSULIN GLARGINE
     Indication: TYPE 2 DIABETES MELLITUS
     Dosage: 72 IU, QD
     Route: 065

REACTIONS (4)
  - Blood glucose increased [Unknown]
  - Neuropathy peripheral [Unknown]
  - Device issue [Unknown]
  - Incorrect dose administered by device [Unknown]
